FAERS Safety Report 23097645 (Version 1)
Quarter: 2023Q4

REPORT INFORMATION
  Report Type: Spontaneous
  Country: US (occurrence: US)
  Receive Date: 20231023
  Receipt Date: 20231023
  Transmission Date: 20240110
  Serious: Yes (Other)
  Sender: FDA-Public Use
  Company Number: US-JNJFOC-20231032165

PATIENT

DRUGS (1)
  1. RYBREVANT [Suspect]
     Active Substance: AMIVANTAMAB-VMJW
     Indication: Lung neoplasm malignant
     Route: 042

REACTIONS (6)
  - Visual field defect [Unknown]
  - Pulmonary mass [Unknown]
  - Acne [Unknown]
  - Skin swelling [Unknown]
  - Dry skin [Unknown]
  - Rash erythematous [Unknown]
